FAERS Safety Report 8038718-4 (Version None)
Quarter: 2012Q1

REPORT INFORMATION
  Report Type: 
  Country: None (occurrence: None)
  Receive Date: 20120111
  Receipt Date: 20111205
  Transmission Date: 20120608
  Serious: No
  Sender: FDA-Public Use
  Company Number: US-AMGEN-USASP2011064471

PATIENT
  Age: 52 Year
  Sex: Female

DRUGS (2)
  1. ENBREL [Suspect]
     Indication: PSORIATIC ARTHROPATHY
     Dosage: 50 MG, QWK
     Dates: start: 20001001
  2. ENBREL [Suspect]
     Indication: PSORIASIS

REACTIONS (5)
  - RESPIRATORY TRACT CONGESTION [None]
  - BRONCHITIS [None]
  - ASTHMA [None]
  - PSORIATIC ARTHROPATHY [None]
  - WALKING AID USER [None]
